FAERS Safety Report 8112819-4 (Version None)
Quarter: 2012Q1

REPORT INFORMATION
  Report Type: 
  Country: None (occurrence: None)
  Receive Date: 20120203
  Receipt Date: 20120124
  Transmission Date: 20120608
  Serious: Yes (Other)
  Sender: FDA-Public Use
  Company Number: CA-JNJFOC-20120200915

PATIENT
  Sex: Male
  Weight: 76 kg

DRUGS (3)
  1. REMICADE [Suspect]
     Route: 042
     Dates: start: 20111203, end: 20111203
  2. REMICADE [Suspect]
     Indication: COLITIS ULCERATIVE
     Route: 042
     Dates: start: 20111006
  3. REMICADE [Suspect]
     Route: 042
     Dates: start: 20110823

REACTIONS (4)
  - ADVERSE EVENT [None]
  - INFUSION RELATED REACTION [None]
  - COLECTOMY [None]
  - DRUG INEFFECTIVE [None]
